FAERS Safety Report 7522094-7 (Version None)
Quarter: 2011Q2

REPORT INFORMATION
  Report Type: 
  Country: None (occurrence: None)
  Receive Date: 20110603
  Receipt Date: 20110531
  Transmission Date: 20111010
  Serious: Yes (Other)
  Sender: FDA-Public Use
  Company Number: US-PFIZER INC-2011118877

PATIENT
  Age: 50 Year
  Sex: Male

DRUGS (2)
  1. XANAX [Suspect]
     Dosage: 2 MG, UNK
  2. ALPRAZOLAM [Suspect]

REACTIONS (4)
  - ORGAN FAILURE [None]
  - SURGERY [None]
  - NEOPLASM MALIGNANT [None]
  - MENTAL DISORDER [None]
